FAERS Safety Report 10427664 (Version 2)
Quarter: 2014Q4

REPORT INFORMATION
  Report Type: Spontaneous
  Country: JP (occurrence: JP)
  Receive Date: 20140903
  Receipt Date: 20141103
  Transmission Date: 20150528
  Serious: Yes (Death, Hospitalization, Other)
  Sender: FDA-Public Use
  Company Number: PHHY2013JP161847

PATIENT
  Age: 69 Year
  Sex: Male

DRUGS (2)
  1. EXJADE [Suspect]
     Active Substance: DEFERASIROX
     Indication: MYELODYSPLASTIC SYNDROME
     Dosage: 125 MG, QD
     Route: 048
  2. EXJADE [Suspect]
     Active Substance: DEFERASIROX
     Dosage: 475 MG, QD
     Route: 048
     Dates: start: 20100208, end: 20110505

REACTIONS (5)
  - Condition aggravated [Unknown]
  - Myelodysplastic syndrome [Fatal]
  - Depressed level of consciousness [Unknown]
  - Mouth haemorrhage [Unknown]
  - Bone marrow failure [Unknown]

NARRATIVE: CASE EVENT DATE: 20110506
